FAERS Safety Report 13670832 (Version 2)
Quarter: 2017Q3

REPORT INFORMATION
  Report Type: Spontaneous
  Country: IL (occurrence: IL)
  Receive Date: 20170620
  Receipt Date: 20170704
  Transmission Date: 20171127
  Serious: Yes (Other)
  Sender: FDA-Public Use
  Company Number: PHHY2017IL090656

PATIENT
  Age: 75 Year
  Sex: Female

DRUGS (1)
  1. ZOLEDRONATE [Suspect]
     Active Substance: ZOLEDRONIC ACID
     Indication: OSTEOPOROSIS
     Dosage: UNK
     Route: 042

REACTIONS (6)
  - Rheumatoid arthritis [Unknown]
  - Pyrexia [Unknown]
  - Pain in extremity [Unknown]
  - Peripheral swelling [Unknown]
  - Vomiting [Unknown]
  - Syncope [Unknown]
